FAERS Safety Report 5283265-6 (Version None)
Quarter: 2007Q1

REPORT INFORMATION
  Report Type: 
  Country: None (occurrence: None)
  Receive Date: 20070329
  Receipt Date: 20070329
  Transmission Date: 20070707
  Serious: Yes (Other)
  Sender: FDA-Public Use
  Company Number: None

PATIENT
  Sex: Male

DRUGS (12)
  1. REVLIMID [Suspect]
     Indication: MULTIPLE MYELOMA
     Dosage: 20MG DAILY 21D/28D PO
     Route: 048
  2. ZOMETA [Concomitant]
  3. DILTIA XT [Concomitant]
  4. DIGOXIN [Concomitant]
  5. DESONIDE CREAM [Concomitant]
  6. VICODIN [Concomitant]
  7. COMBIVENT [Concomitant]
  8. OMEPRAZOLE [Concomitant]
  9. WARFARIN SODIUM [Concomitant]
  10. FLONASE [Concomitant]
  11. AMBIEN [Concomitant]
  12. ALPRAZOLAM [Concomitant]

REACTIONS (2)
  - ANAEMIA [None]
  - FATIGUE [None]
